FAERS Safety Report 8595077-6 (Version None)
Quarter: 2012Q3

REPORT INFORMATION
  Report Type: 
  Country: None (occurrence: None)
  Receive Date: 20120815
  Receipt Date: 20120808
  Transmission Date: 20120928
  Serious: Yes (Other)
  Sender: FDA-Public Use
  Company Number: US-UCBSA-061428

PATIENT
  Age: 26 Year
  Sex: Female

DRUGS (5)
  1. VIMPAT [Suspect]
     Indication: CONVULSION
     Dosage: UNKNOWN
  2. KEPPRA [Suspect]
  3. MAXALT-MLT [Concomitant]
  4. PROPRANOLOL [Concomitant]
  5. NEURONTIN [Concomitant]

REACTIONS (3)
  - DEPRESSION [None]
  - FRUSTRATION [None]
  - CONVULSION [None]
